FAERS Safety Report 18238566 (Version 1)
Quarter: 2020Q3

REPORT INFORMATION
  Report Type: Spontaneous
  Country: US (occurrence: US)
  Receive Date: 20200907
  Receipt Date: 20200907
  Transmission Date: 20201103
  Serious: No
  Sender: FDA-Public Use
  Company Number: US-GLENMARK PHARMACEUTICALS-2020GMK046241

PATIENT

DRUGS (2)
  1. DROSPIRENONE/ETHINYL ESTRADIOL [Suspect]
     Active Substance: DROSPIRENONE\ETHINYL ESTRADIOL
     Dosage: RESTARTED
     Route: 065
     Dates: start: 2020
  2. DROSPIRENONE/ETHINYL ESTRADIOL [Suspect]
     Active Substance: DROSPIRENONE\ETHINYL ESTRADIOL
     Indication: MENSTRUAL CYCLE MANAGEMENT
     Dosage: 1 DF, OD (1 TABLET A DAY)
     Route: 048
     Dates: start: 20200120, end: 20200212

REACTIONS (7)
  - Product use in unapproved indication [Unknown]
  - Dysmenorrhoea [Recovered/Resolved]
  - Product packaging quantity issue [Unknown]
  - Product quality issue [Unknown]
  - Breast tenderness [Recovered/Resolved]
  - Product administration error [Unknown]
  - Vaginal haemorrhage [Recovered/Resolved]
